FAERS Safety Report 6715594-0 (Version None)
Quarter: 2010Q2

REPORT INFORMATION
  Report Type: 
  Country: None (occurrence: None)
  Receive Date: 20100507
  Receipt Date: 20100428
  Transmission Date: 20101027
  Serious: Yes (Death)
  Sender: FDA-Public Use
  Company Number: CO-ROCHE-699957

PATIENT
  Sex: Male

DRUGS (1)
  1. AVASTIN [Suspect]
     Route: 042
     Dates: start: 20090908, end: 20100225

REACTIONS (3)
  - CARDIOPULMONARY FAILURE [None]
  - PYREXIA [None]
  - URINARY TRACT INFECTION [None]
